FAERS Safety Report 8022039-X (Version None)
Quarter: 2012Q1

REPORT INFORMATION
  Report Type: 
  Country: None (occurrence: None)
  Receive Date: 20120104
  Receipt Date: 20111226
  Transmission Date: 20120608
  Serious: Yes (Hospitalization)
  Sender: FDA-Public Use
  Company Number: JP-NOVOPROD-340590

PATIENT

DRUGS (13)
  1. NOVORAPID 30 MIX CHU FLEXPEN [Suspect]
     Indication: TYPE 2 DIABETES MELLITUS
     Dosage: 140 U, QD
     Route: 058
     Dates: start: 20111130, end: 20111130
  2. NOVORAPID 30 MIX CHU FLEXPEN [Suspect]
     Dosage: 45 U, QD
     Route: 058
     Dates: start: 20111216
  3. LEVEMIR [Suspect]
     Indication: TYPE 2 DIABETES MELLITUS
     Dosage: 25 U IN MORNING
     Route: 065
     Dates: start: 20111206
  4. JANUVIA [Concomitant]
     Dosage: 50 MG
  5. NOVOLIN 30R CHU [Suspect]
     Dosage: 40-20-30 U/DAY
     Route: 065
     Dates: start: 20111203
  6. NOVORAPID 30 MIX CHU FLEXPEN [Suspect]
     Dosage: 50 IU, QD
     Route: 058
     Dates: start: 20111224
  7. NOVOLIN 30R CHU [Suspect]
     Dosage: 45-30-25 U/DAY
     Route: 065
     Dates: start: 20111213
  8. NOVOLIN 30R CHU [Suspect]
     Dosage: 35-30-30 U/DAY
     Route: 065
     Dates: start: 20111206
  9. NOVOLIN 30R CHU [Suspect]
     Dosage: 40-35-35 U/DAY
     Route: 065
     Dates: start: 20111209
  10. NOVOLIN 30R CHU [Suspect]
     Dosage: 0-30-10 U/DAY
     Route: 065
     Dates: start: 20111216
  11. NOVOLIN 30R CHU [Suspect]
     Indication: TYPE 2 DIABETES MELLITUS
     Dosage: UNKNOWN
     Route: 065
  12. NOVOLIN 30R CHU [Suspect]
     Dosage: 10-15-15 U/DAY
     Route: 065
     Dates: start: 20111204
  13. NOVOLIN 30R CHU [Suspect]
     Dosage: 0-20-0 U/DAY
     Route: 065
     Dates: start: 20111224

REACTIONS (2)
  - ANTI-INSULIN ANTIBODY POSITIVE [None]
  - DIABETES MELLITUS INADEQUATE CONTROL [None]
